FAERS Safety Report 8852559 (Version 1)
Quarter: 2012Q4

REPORT INFORMATION
  Report Type: 
  Country: MX (occurrence: MX)
  Receive Date: 20121022
  Receipt Date: 20121022
  Transmission Date: 20130627
  Serious: Yes (Hospitalization)
  Sender: FDA-Public Use
  Company Number: PHHY2012MX094376

PATIENT
  Age: 76 Year
  Sex: Female

DRUGS (2)
  1. EXELON PATCH [Suspect]
     Indication: DEMENTIA ALZHEIMER^S TYPE
     Dosage: (5 cm2/4.6 mg), daily
     Route: 062
  2. EXELON PATCH [Suspect]
     Route: 062

REACTIONS (1)
  - Cardiac disorder [Not Recovered/Not Resolved]
